FAERS Safety Report 17575740 (Version 2)
Quarter: 2020Q1

REPORT INFORMATION
  Report Type: Spontaneous
  Country: US (occurrence: US)
  Receive Date: 20200324
  Receipt Date: 20200331
  Transmission Date: 20200409
  Serious: Yes (Hospitalization, Other)
  Sender: FDA-Public Use
  Company Number: US-PFIZER INC-2020122000

PATIENT
  Age: 6 Week
  Sex: Female

DRUGS (2)
  1. GLUCOSE [Suspect]
     Active Substance: DEXTROSE
     Indication: HYPOGLYCAEMIA
     Dosage: UNK (TWO 5 ML/KG D10 BOLUSES)
     Route: 040
  2. BACTERIOSTATIC SODIUM CHLORIDE [Suspect]
     Active Substance: SODIUM CHLORIDE
     Dosage: UNK, (THREE 20 ML/KG)
     Route: 040

REACTIONS (1)
  - Hypernatraemia [Recovered/Resolved]
